FAERS Safety Report 8823402 (Version 1)
Quarter: 2012Q4

REPORT INFORMATION
  Report Type: 
  Country: US (occurrence: US)
  Receive Date: 20121003
  Receipt Date: 20121003
  Transmission Date: 20130627
  Serious: Yes (Other)
  Sender: FDA-Public Use
  Company Number: US-MERCK-1009USA03826

PATIENT
  Age: 64 None
  Sex: Female

DRUGS (4)
  1. JANUVIA [Suspect]
     Indication: TYPE 2 DIABETES MELLITUS
     Route: 048
  2. LANTUS [Suspect]
     Indication: TYPE 2 DIABETES MELLITUS
     Dosage: 20 U, qd
     Route: 058
     Dates: start: 20100617
  3. AVANDIA [Suspect]
     Indication: TYPE 2 DIABETES MELLITUS
  4. GLUCOTROL [Suspect]
     Indication: TYPE 2 DIABETES MELLITUS
     Dates: end: 201006

REACTIONS (6)
  - Blood glucose increased [Unknown]
  - Oedema peripheral [Unknown]
  - Arthralgia [Unknown]
  - Injection site haematoma [Unknown]
  - Stress [Unknown]
  - Medication error [Unknown]
